FAERS Safety Report 4539757-8 (Version None)
Quarter: 2004Q4

REPORT INFORMATION
  Report Type: 
  Country: None (occurrence: None)
  Receive Date: 20041228
  Receipt Date: 20041216
  Transmission Date: 20050328
  Serious: Yes (Other)
  Sender: FDA-Public Use
  Company Number: AR-BRISTOL-MYERS SQUIBB COMPANY-12806477

PATIENT
  Age: 59 Year
  Sex: Male

DRUGS (6)
  1. REYATAZ [Suspect]
     Indication: HIV INFECTION
     Route: 048
     Dates: start: 20040401
  2. STAVUDINE [Suspect]
     Indication: HIV INFECTION
     Dates: start: 19980101, end: 20010101
  3. DIDANOSINE [Suspect]
     Indication: HIV INFECTION
     Dosage: INTERRUPTED IN 2001, THEN RESTARTED IN OCT 2003
     Dates: start: 19980101
  4. ABACAVIR [Suspect]
     Indication: HIV INFECTION
     Dosage: INTERRUPTED IN 2001, RESTARTED IN OCT-2003
     Dates: start: 20010101
  5. KALETRA [Suspect]
     Indication: HIV INFECTION
     Dates: start: 20030101
  6. RITONAVIR [Concomitant]
     Indication: HIV INFECTION
     Route: 048
     Dates: start: 20040401

REACTIONS (5)
  - BLOOD CHOLESTEROL INCREASED [None]
  - BLOOD TRIGLYCERIDES INCREASED [None]
  - HYPERLIPIDAEMIA [None]
  - LIPODYSTROPHY ACQUIRED [None]
  - TENDONITIS [None]
